FAERS Safety Report 4933669-3 (Version None)
Quarter: 2006Q1

REPORT INFORMATION
  Report Type: 
  Country: None (occurrence: None)
  Receive Date: 20060306
  Receipt Date: 20060302
  Transmission Date: 20060701
  Serious: Yes (Other)
  Sender: FDA-Public Use
  Company Number: 3004699328-2006-00002

PATIENT
  Sex: Female

DRUGS (1)
  1. SUPER POLIGRIP COMFORT SEAL STRIPS [Suspect]
     Indication: TOOTH DISORDER

REACTIONS (4)
  - APHASIA [None]
  - DISCOMFORT [None]
  - SALIVA ALTERED [None]
  - TONGUE PARALYSIS [None]
